FAERS Safety Report 10013553 (Version 1)
Quarter: 2014Q1

REPORT INFORMATION
  Report Type: Spontaneous
  Country: FR (occurrence: FR)
  Receive Date: 20140315
  Receipt Date: 20140315
  Transmission Date: 20141002
  Serious: Yes (Hospitalization)
  Sender: FDA-Public Use
  Company Number: FR-ABBVIE-14P-056-1210932-00

PATIENT
  Age: 45 Year
  Sex: Male

DRUGS (3)
  1. NORVIR [Suspect]
     Indication: HIV INFECTION
     Route: 048
     Dates: start: 20110531
  2. TRUVADA [Suspect]
     Indication: HIV INFECTION
     Route: 048
     Dates: start: 20110531
  3. REYATAZ [Suspect]
     Indication: HIV INFECTION
     Route: 048
     Dates: start: 20110531

REACTIONS (7)
  - Nephrolithiasis [Recovered/Resolved]
  - Calculus ureteric [Recovered/Resolved]
  - Fatigue [Recovering/Resolving]
  - Blood urine present [Unknown]
  - Pain [Recovering/Resolving]
  - Pain [Unknown]
  - Fatigue [Unknown]
